FAERS Safety Report 6907641-8 (Version None)
Quarter: 2010Q3

REPORT INFORMATION
  Report Type: 
  Country: None (occurrence: None)
  Receive Date: 20100719
  Receipt Date: 20100203
  Transmission Date: 20110219
  Serious: Yes (Other)
  Sender: FDA-Public Use
  Company Number: 2010014514

PATIENT

DRUGS (1)
  1. HYDROCORTISONE [Suspect]

REACTIONS (1)
  - HYPERSENSITIVITY [None]
